FAERS Safety Report 19846618 (Version 1)
Quarter: 2021Q3

REPORT INFORMATION
  Report Type: Spontaneous
  Country: US (occurrence: US)
  Receive Date: 20210917
  Receipt Date: 20210917
  Transmission Date: 20211014
  Serious: No
  Sender: FDA-Public Use
  Company Number: US-ASTRAZENECA-2021A710611

PATIENT
  Sex: Female
  Weight: 113.4 kg

DRUGS (2)
  1. JARDIANCE [Concomitant]
     Active Substance: EMPAGLIFLOZIN
     Route: 065
  2. BYDUREON BCISE [Suspect]
     Active Substance: EXENATIDE
     Indication: TYPE 2 DIABETES MELLITUS
     Route: 058

REACTIONS (5)
  - Weight decreased [Unknown]
  - Device issue [Unknown]
  - Injection site nodule [Recovered/Resolved]
  - Wrong technique in device usage process [Unknown]
  - Device leakage [Unknown]
